FAERS Safety Report 5280431-0 (Version None)
Quarter: 2007Q1

REPORT INFORMATION
  Report Type: 
  Country: None (occurrence: None)
  Receive Date: 20061229
  Receipt Date: 20060929
  Transmission Date: 20070707
  Serious: Yes (Other)
  Sender: FDA-Public Use
  Company Number: 2006UW19028

PATIENT
  Age: 72 Year
  Sex: Male
  Weight: 117.93 kg

DRUGS (8)
  1. CRESTOR [Suspect]
     Indication: BLOOD CHOLESTEROL INCREASED
     Dosage: 10 MG PO
     Route: 048
     Dates: start: 20060801
  2. COUMADIN [Concomitant]
  3. METOPROLOL SUCCINATE [Concomitant]
  4. NAPROXEN [Concomitant]
  5. LISINOPRIL [Concomitant]
  6. VITAMIN E [Concomitant]
  7. POTASSIUM ACETATE [Concomitant]
  8. GLUCOSAMINE COMPLEX [Concomitant]

REACTIONS (3)
  - DIZZINESS [None]
  - DYSPEPSIA [None]
  - STOMACH DISCOMFORT [None]
